FAERS Safety Report 5361701-4 (Version None)
Quarter: 2007Q2

REPORT INFORMATION
  Report Type: 
  Country: None (occurrence: None)
  Receive Date: 20070615
  Receipt Date: 20070615
  Transmission Date: 20071010
  Serious: Yes (Other)
  Sender: FDA-Public Use
  Company Number: None

PATIENT
  Age: 42 Year
  Sex: Female
  Weight: 68.0396 kg

DRUGS (1)
  1. PROMETHAZINE [Suspect]
     Indication: PROCEDURAL NAUSEA
     Dosage: 12.5 MG X 1 IVP
     Route: 042
     Dates: start: 20070202

REACTIONS (6)
  - DISCOMFORT [None]
  - GRIP STRENGTH DECREASED [None]
  - INFUSION SITE ERYTHEMA [None]
  - INFUSION SITE PAIN [None]
  - INFUSION SITE SWELLING [None]
  - VASODILATATION [None]
